FAERS Safety Report 7912140-0 (Version None)
Quarter: 2011Q4

REPORT INFORMATION
  Report Type: 
  Country: None (occurrence: None)
  Receive Date: 20111114
  Receipt Date: 20111104
  Transmission Date: 20120403
  Serious: Yes (Death, Hospitalization, Other)
  Sender: FDA-Public Use
  Company Number: FR-PFIZER INC-2011276010

PATIENT
  Age: 85 Year
  Sex: Female

DRUGS (13)
  1. LASIX [Concomitant]
  2. ENOXOR [Concomitant]
  3. PROTHIADEN [Concomitant]
  4. ISOSORBIDE DINITRATE [Concomitant]
     Dosage: UNK
     Dates: start: 20110909
  5. VALSARTAN [Concomitant]
     Dosage: UNK
     Dates: start: 20030101
  6. LANSOPRAZOLE [Concomitant]
  7. COLCHICINE [Concomitant]
  8. DILTIAZEM HCL [Concomitant]
  9. DOBUTAMINE [Concomitant]
  10. CORDARONE [Suspect]
     Indication: ATRIAL FIBRILLATION
     Dosage: UNK
     Route: 048
     Dates: start: 20100401
  11. COUMADIN [Concomitant]
  12. POTASSIUM CHLORIDE [Concomitant]
  13. DEBRIDAT [Concomitant]

REACTIONS (4)
  - PSEUDOMONAS INFECTION [None]
  - INTERSTITIAL LUNG DISEASE [None]
  - ASPERGILLOSIS [None]
  - ACUTE RESPIRATORY FAILURE [None]
